FAERS Safety Report 18338015 (Version 3)
Quarter: 2021Q2

REPORT INFORMATION
  Report Type: Report from Study
  Country: CA (occurrence: CA)
  Receive Date: 20201002
  Receipt Date: 20210513
  Transmission Date: 20210717
  Serious: No
  Sender: FDA-Public Use
  Company Number: CA-GLAXOSMITHKLINE-CA2020197173

PATIENT
  Age: 55 Year
  Sex: Male

DRUGS (6)
  1. VOLTAREN [Concomitant]
     Active Substance: DICLOFENAC SODIUM
     Indication: CARDIAC FAILURE
     Dosage: UNK
     Route: 048
     Dates: start: 2015
  2. COSENTYX [Suspect]
     Active Substance: SECUKINUMAB
     Dosage: 150 MG, Q2W
     Route: 058
  3. OXYCODONE + PARACETAMOL [Concomitant]
     Active Substance: ACETAMINOPHEN\OXYCODONE HYDROCHLORIDE
     Indication: PRODUCT USED FOR UNKNOWN INDICATION
     Dosage: UNK
     Route: 065
     Dates: start: 2014
  4. DICLOFENAC [Suspect]
     Active Substance: DICLOFENAC
     Indication: PRODUCT USED FOR UNKNOWN INDICATION
     Dosage: UNK UNK, UNKNOWN
     Route: 065
     Dates: start: 2015
  5. COSENTYX [Suspect]
     Active Substance: SECUKINUMAB
     Indication: ANKYLOSING SPONDYLITIS
     Dosage: 150 MG, QMO
     Route: 058
     Dates: start: 20201125
  6. NAPROXEN. [Concomitant]
     Active Substance: NAPROXEN
     Indication: PRODUCT USED FOR UNKNOWN INDICATION
     Dosage: UNK
     Route: 065
     Dates: start: 2005, end: 2015

REACTIONS (5)
  - C-reactive protein increased [Unknown]
  - Inappropriate schedule of product administration [Unknown]
  - Product prescribing error [Unknown]
  - Pain [Unknown]
  - Therapeutic product effect decreased [Unknown]
